FAERS Safety Report 9439268 (Version 1)
Quarter: 2013Q3

REPORT INFORMATION
  Report Type: Spontaneous
  Country: GB (occurrence: GB)
  Receive Date: 20130804
  Receipt Date: 20130804
  Transmission Date: 20140515
  Serious: Yes (Other)
  Sender: FDA-Public Use
  Company Number: GB-ROCHE-1236631

PATIENT
  Sex: Male

DRUGS (7)
  1. MABTHERA [Suspect]
     Indication: RHEUMATOID ARTHRITIS
     Route: 042
     Dates: start: 20130409
  2. METHYL PREDNISOLONE SODIUM SUCCINATE [Concomitant]
     Route: 042
     Dates: start: 20130409
  3. METHOTREXATE [Concomitant]
     Indication: RHEUMATOID ARTHRITIS
     Route: 048
     Dates: start: 20100101
  4. SULPHASALAZINE [Concomitant]
     Indication: RHEUMATOID ARTHRITIS
     Dosage: DOSE: 1 GBD
     Route: 048
     Dates: start: 20070401
  5. HYDROXYCHLOROQUINE [Concomitant]
     Indication: RHEUMATOID ARTHRITIS
     Route: 048
     Dates: start: 20111013
  6. HYDROCORTISONE [Concomitant]
     Route: 048
  7. FLUDROCORTISONE [Concomitant]
     Route: 065

REACTIONS (2)
  - Condition aggravated [Recovering/Resolving]
  - Hypersensitivity [Unknown]
